FAERS Safety Report 15609405 (Version 2)
Quarter: 2019Q1

REPORT INFORMATION
  Report Type: Spontaneous
  Country: US (occurrence: US)
  Receive Date: 20181112
  Receipt Date: 20190108
  Transmission Date: 20190417
  Serious: Yes (Hospitalization, Other)
  Sender: FDA-Public Use
  Company Number: US-AMGEN-USASP2018158101

PATIENT
  Age: 48 Year
  Sex: Male

DRUGS (3)
  1. ENBREL [Suspect]
     Active Substance: ETANERCEPT
     Indication: RHEUMATOID ARTHRITIS
  2. ENBREL [Suspect]
     Active Substance: ETANERCEPT
     Indication: PSORIASIS
     Dosage: 50 MG, QWK
     Route: 065
  3. FLUOCINONIDE. [Concomitant]
     Active Substance: FLUOCINONIDE
     Dosage: UNK UNK, APPROXIMATELY 3 TIMES A DAY
     Route: 061

REACTIONS (11)
  - Rash [Unknown]
  - Road traffic accident [Unknown]
  - Obesity [Unknown]
  - Shunt infection [Recovered/Resolved]
  - Paraplegia [Unknown]
  - Urinary incontinence [Unknown]
  - Craniocerebral injury [Unknown]
  - Quadriplegia [Unknown]
  - Product dose omission [Unknown]
  - Blindness unilateral [Unknown]
  - Drug effect decreased [Unknown]

NARRATIVE: CASE EVENT DATE: 2014
